FAERS Safety Report 25934325 (Version 1)
Quarter: 2025Q4

REPORT INFORMATION
  Report Type: Spontaneous
  Country: GB (occurrence: GB)
  Receive Date: 20251017
  Receipt Date: 20251017
  Transmission Date: 20260118
  Serious: Yes (Other)
  Sender: AUROBINDO
  Company Number: GB-MHRA-TPP7065467C11471473YC1759850351577

PATIENT
  Age: 68 Year
  Sex: Female
  Weight: 73 kg

DRUGS (7)
  1. RAMIPRIL [Suspect]
     Active Substance: RAMIPRIL
     Indication: Ill-defined disorder
     Dosage: 5 MILLIGRAM, ONCE A DAY
     Route: 065
     Dates: start: 20250721, end: 20250925
  2. OMEPRAZOLE [Concomitant]
     Active Substance: OMEPRAZOLE
     Indication: Ill-defined disorder
     Dosage: UNK UNK, ONCE A DAY (TAKE ONE DAILY WHEN TAKING WITH ANTI-INFLAMMATO)
     Route: 065
     Dates: start: 20230509
  3. BUDESONIDE\FORMOTEROL FUMARATE [Concomitant]
     Active Substance: BUDESONIDE\FORMOTEROL FUMARATE
     Indication: Ill-defined disorder
     Dosage: UNK UNK, TWO TIMES A DAY (~INHALE 2 DOSE TWICE DAILY  )
     Dates: start: 20250312
  4. ALBUTEROL [Concomitant]
     Active Substance: ALBUTEROL
     Indication: Ill-defined disorder
     Dosage: 2 DOSAGE FORM AS NEEDED
     Dates: start: 20250312
  5. DYMISTA [Concomitant]
     Active Substance: AZELASTINE HYDROCHLORIDE\FLUTICASONE PROPIONATE
     Indication: Ill-defined disorder
     Dosage: UNK UNK, TWO TIMES A DAY (ONE PUFF TWICE DAILY)
     Route: 065
     Dates: start: 20250417
  6. AMLODIPINE [Concomitant]
     Active Substance: AMLODIPINE BESYLATE
     Indication: Ill-defined disorder
     Dosage: UNK UNK, ONCE A DAY
     Route: 065
     Dates: start: 20250520, end: 20250721
  7. INDAPAMIDE [Concomitant]
     Active Substance: INDAPAMIDE
     Indication: Ill-defined disorder
     Dosage: UNK (TAKE ONE EACH MORNING)
     Route: 065
     Dates: start: 20250925

REACTIONS (1)
  - Arthritis [Recovered/Resolved]
